FAERS Safety Report 8971208 (Version 1)
Quarter: 2012Q4

REPORT INFORMATION
  Report Type: 
  Country: US (occurrence: US)
  Receive Date: 20121217
  Receipt Date: 20121217
  Transmission Date: 20130627
  Serious: Yes (Hospitalization)
  Sender: FDA-Public Use
  Company Number: US-GLAXOSMITHKLINE-A1005236A

PATIENT
  Age: 63 Year
  Sex: Female

DRUGS (8)
  1. ADVAIR [Suspect]
     Indication: CHRONIC OBSTRUCTIVE PULMONARY DISEASE
     Dosage: 1PUFF Twice per day
     Route: 055
     Dates: start: 20121203, end: 20121212
  2. ADVAIR [Suspect]
     Indication: CHRONIC OBSTRUCTIVE PULMONARY DISEASE
     Dosage: 1SPR Twice per day
     Route: 055
     Dates: start: 2010, end: 20121203
  3. NEBULIZER TREATMENT [Concomitant]
  4. LEVOQUIN [Concomitant]
  5. MULTIVITAMIN [Concomitant]
  6. OXYGEN [Concomitant]
  7. BENADRYL [Concomitant]
  8. SPIRIVA [Concomitant]

REACTIONS (5)
  - Pruritus [Not Recovered/Not Resolved]
  - Burning sensation [Not Recovered/Not Resolved]
  - Pain [Not Recovered/Not Resolved]
  - Heart rate increased [Not Recovered/Not Resolved]
  - Chronic obstructive pulmonary disease [Not Recovered/Not Resolved]
